FAERS Safety Report 20140943 (Version 9)
Quarter: 2022Q1

REPORT INFORMATION
  Report Type: Report from Study
  Country: US (occurrence: US)
  Receive Date: 20211202
  Receipt Date: 20220317
  Transmission Date: 20220423
  Serious: No
  Sender: FDA-Public Use
  Company Number: US-NOVARTISTESTPH-NVSC2021US274941

PATIENT
  Sex: Female
  Weight: 170.8 kg

DRUGS (5)
  1. TREPROSTINIL [Suspect]
     Active Substance: TREPROSTINIL
     Indication: Pulmonary arterial hypertension
     Dosage: 20 NG/KG/MIN
     Route: 042
     Dates: start: 20211111
  2. TREPROSTINIL [Suspect]
     Active Substance: TREPROSTINIL
     Dosage: (38 NG/KG/MIN), (FREQUENCY: CONTINUES)
     Route: 042
     Dates: start: 20211111
  3. TREPROSTINIL [Suspect]
     Active Substance: TREPROSTINIL
     Dosage: UNK 42 NG/KG/MIN CONTINUOUS
     Route: 042
     Dates: start: 20211111
  4. TREPROSTINIL [Suspect]
     Active Substance: TREPROSTINIL
     Dosage: UNK 44 NG/KG/MIN CONTINUOUS
     Route: 042
     Dates: start: 20211111
  5. AMBRISENTAN [Concomitant]
     Active Substance: AMBRISENTAN
     Indication: Product used for unknown indication
     Dosage: UNK
     Route: 065

REACTIONS (12)
  - Pain in extremity [Not Recovered/Not Resolved]
  - Scratch [Unknown]
  - Limb discomfort [Unknown]
  - Pain [Unknown]
  - Gout [Unknown]
  - Swelling [Not Recovered/Not Resolved]
  - Diarrhoea [Unknown]
  - Nausea [Unknown]
  - Headache [Unknown]
  - Catheter site rash [Recovered/Resolved]
  - Catheter site rash [Not Recovered/Not Resolved]
  - Migraine [Unknown]
